FAERS Safety Report 6443090-7 (Version None)
Quarter: 2009Q4

REPORT INFORMATION
  Report Type: 
  Country: None (occurrence: None)
  Receive Date: 20091117
  Receipt Date: 20091105
  Transmission Date: 20100525
  Serious: Yes (Hospitalization)
  Sender: FDA-Public Use
  Company Number: JP-ELI_LILLY_AND_COMPANY-JP200911002600

PATIENT
  Age: 62 Year
  Sex: Male

DRUGS (5)
  1. HUMALOG [Suspect]
     Indication: DIABETES MELLITUS
     Route: 058
  2. HUMACART NPH [Suspect]
     Indication: DIABETES MELLITUS
     Route: 058
  3. NOVORAPID [Concomitant]
     Route: 058
  4. INSULIN DETEMIR [Concomitant]
     Route: 058
  5. LANTUS [Concomitant]
     Route: 058

REACTIONS (5)
  - ANTI-INSULIN ANTIBODY POSITIVE [None]
  - BLOOD INSULIN INCREASED [None]
  - DIABETES MELLITUS INADEQUATE CONTROL [None]
  - HYPOGLYCAEMIA [None]
  - OSTEOMYELITIS [None]
